FAERS Safety Report 9324304 (Version 2)
Quarter: 2013Q3

REPORT INFORMATION
  Report Type: Spontaneous
  Country: DK (occurrence: DK)
  Receive Date: 20130603
  Receipt Date: 20130719
  Transmission Date: 20140515
  Serious: Yes (Hospitalization)
  Sender: FDA-Public Use
  Company Number: PHHY2013DK053906

PATIENT
  Age: 30 Year
  Sex: Female
  Weight: 65 kg

DRUGS (2)
  1. DICLOFENAC [Suspect]
     Indication: PAIN
     Dosage: UNK UKN, UNK
     Route: 048
     Dates: start: 200903, end: 2009
  2. AMPICILLIN [Suspect]
     Indication: PELVIC INFLAMMATORY DISEASE
     Dosage: UNK UKN, UNK
     Route: 048
     Dates: start: 20090310

REACTIONS (4)
  - Hypersensitivity [Recovered/Resolved]
  - Urticaria [Recovered/Resolved]
  - Palpitations [Recovered/Resolved]
  - Dyspnoea [Recovered/Resolved]
